FAERS Safety Report 9463492 (Version 1)
Quarter: 2013Q3

REPORT INFORMATION
  Report Type: Spontaneous
  Country: US (occurrence: US)
  Receive Date: 20130819
  Receipt Date: 20130819
  Transmission Date: 20140515
  Serious: No
  Sender: FDA-Public Use
  Company Number: US-US-EMD SERONO, INC.-7229552

PATIENT
  Age: 58 Year
  Sex: Female
  Weight: 124 kg

DRUGS (1)
  1. REBIF [Suspect]
     Indication: MULTIPLE SCLEROSIS
     Route: 058
     Dates: start: 20130402

REACTIONS (3)
  - Irritable bowel syndrome [Unknown]
  - Glossitis [Not Recovered/Not Resolved]
  - Tongue eruption [Not Recovered/Not Resolved]
